FAERS Safety Report 13012607 (Version 2)
Quarter: 2017Q1

REPORT INFORMATION
  Report Type: Spontaneous
  Country: IT (occurrence: IT)
  Receive Date: 20161209
  Receipt Date: 20170220
  Transmission Date: 20170428
  Serious: Yes (Other)
  Sender: FDA-Public Use
  Company Number: IT-009507513-1612ITA003326

PATIENT
  Age: 91 Year
  Sex: Female

DRUGS (8)
  1. TAPAZOLE [Suspect]
     Active Substance: METHIMAZOLE
     Dosage: UNK
  2. CARDIOASPIRIN [Suspect]
     Active Substance: ASPIRIN
     Dosage: UNK
  3. HALCION [Suspect]
     Active Substance: TRIAZOLAM
     Dosage: UNK
  4. CLOPIXOL TABLETS [Suspect]
     Active Substance: ZUCLOPENTHIXOL HYDROCHLORIDE
     Dosage: UNK
     Route: 048
  5. VASORETIC 20 MG + 12,5 MG COMPRESSE [Suspect]
     Active Substance: ENALAPRIL MALEATE\HYDROCHLOROTHIAZIDE
     Dosage: UNK
     Route: 048
  6. SIMVASTATIN. [Suspect]
     Active Substance: SIMVASTATIN
     Dosage: UNK
     Route: 048
  7. ALMARYTM [Suspect]
     Active Substance: FLECAINIDE ACETATE
     Dosage: UNK
     Dates: end: 201603
  8. ARLEVERTAN [Suspect]
     Active Substance: CINNARIZINE\DIMENHYDRINATE
     Dosage: UNK

REACTIONS (2)
  - Bradycardia [Unknown]
  - Syncope [Unknown]

NARRATIVE: CASE EVENT DATE: 20160307
